FAERS Safety Report 5105505-6 (Version None)
Quarter: 2006Q3

REPORT INFORMATION
  Report Type: 
  Country: None (occurrence: None)
  Receive Date: 20060915
  Receipt Date: 20060901
  Transmission Date: 20061208
  Serious: Yes (Hospitalization)
  Sender: FDA-Public Use
  Company Number: CN-BRISTOL-MYERS SQUIBB COMPANY-13504022

PATIENT
  Age: 28 Year
  Sex: Female
  Weight: 62 kg

DRUGS (12)
  1. CYCLOPHOSPHAMIDE [Suspect]
     Route: 042
     Dates: start: 20060803, end: 20060803
  2. OMEPRAZOLE [Concomitant]
     Dates: start: 20060722
  3. CALCITRIOL [Concomitant]
     Dates: start: 20060722
  4. PREDNISONE TAB [Concomitant]
     Dates: start: 20060820
  5. AMLODIPINE [Concomitant]
     Dates: start: 20060725
  6. HEPARIN [Concomitant]
     Dates: start: 20060731
  7. CLONIDINE [Concomitant]
     Dates: start: 20060801
  8. SPIRONOLACTONE [Concomitant]
     Dates: start: 20060801
  9. FUROSEMIDE [Concomitant]
     Dates: start: 20060722
  10. ALBUMIN [Concomitant]
     Dates: start: 20060820, end: 20060820
  11. ISOSORBIDE DINITRATE [Concomitant]
     Dates: start: 20060820, end: 20060820
  12. ISOSORBIDE DINITRATE [Concomitant]

REACTIONS (2)
  - HERPES ZOSTER [None]
  - PNEUMONIA [None]
